FAERS Safety Report 5398043-7 (Version None)
Quarter: 2007Q3

REPORT INFORMATION
  Report Type: 
  Country: None (occurrence: None)
  Receive Date: 20070726
  Receipt Date: 20070718
  Transmission Date: 20080115
  Serious: Yes (Death)
  Sender: FDA-Public Use
  Company Number: US-SANOFI-SYNTHELABO-A03200704313

PATIENT
  Sex: Female
  Weight: 60.8 kg

DRUGS (6)
  1. PLAVIX [Suspect]
     Indication: ACUTE CORONARY SYNDROME
     Route: 048
     Dates: start: 20041112
  2. REOPRO [Concomitant]
     Dosage: UNK
     Route: 042
  3. LOVENOX [Concomitant]
     Dosage: UNK
     Route: 058
  4. ZOCOR [Concomitant]
     Dosage: UNK
     Route: 048
  5. TOPROL-XL [Concomitant]
     Dosage: UNK
     Route: 048
  6. ASPIRIN [Suspect]
     Indication: ACUTE CORONARY SYNDROME
     Route: 048
     Dates: start: 20041112

REACTIONS (30)
  - ACUTE MYOCARDIAL INFARCTION [None]
  - CARDIAC ARREST [None]
  - CEREBRAL INFARCTION [None]
  - CHILLS [None]
  - CONSTIPATION [None]
  - DYSGEUSIA [None]
  - ELECTROMECHANICAL DISSOCIATION [None]
  - EPIGASTRIC DISCOMFORT [None]
  - GINGIVAL BLEEDING [None]
  - GROIN PAIN [None]
  - HAEMATURIA [None]
  - HAEMOLYTIC ANAEMIA [None]
  - HAPTOGLOBIN DECREASED [None]
  - HYPERKALAEMIA [None]
  - LIVER FUNCTION TEST ABNORMAL [None]
  - LOCAL SWELLING [None]
  - METABOLIC ACIDOSIS [None]
  - MOUTH HAEMORRHAGE [None]
  - MULTI-ORGAN FAILURE [None]
  - NAUSEA [None]
  - PANCREATITIS [None]
  - RENAL FAILURE ACUTE [None]
  - RESPIRATORY RATE INCREASED [None]
  - SOMNOLENCE [None]
  - TACHYCARDIA [None]
  - THROMBOTIC MICROANGIOPATHY [None]
  - THROMBOTIC THROMBOCYTOPENIC PURPURA [None]
  - TROPONIN I INCREASED [None]
  - URINE OUTPUT DECREASED [None]
  - VENTRICULAR FIBRILLATION [None]
